FAERS Safety Report 7241545-9 (Version None)
Quarter: 2011Q1

REPORT INFORMATION
  Report Type: 
  Country: None (occurrence: None)
  Receive Date: 20110124
  Receipt Date: 20110110
  Transmission Date: 20110831
  Serious: Yes (Other)
  Sender: FDA-Public Use
  Company Number: NL-WATSON-2011-00741

PATIENT
  Age: 81 Year
  Sex: Male

DRUGS (2)
  1. METOPROLOL TARTRATE [Suspect]
     Indication: ANGINA PECTORIS
     Dosage: 50 MG, UNK
     Dates: start: 20041001, end: 20050101
  2. METOPROLOL TARTRATE [Suspect]
     Indication: HYPERTENSION
     Dosage: 25 MG, DAILY
     Dates: start: 20050101

REACTIONS (4)
  - DEPRESSION [None]
  - SLEEP DISORDER [None]
  - NIGHTMARE [None]
  - ANXIETY [None]
